FAERS Safety Report 21474400 (Version 2)
Quarter: 2022Q4

REPORT INFORMATION
  Report Type: Spontaneous
  Country: US (occurrence: US)
  Receive Date: 20221018
  Receipt Date: 20221025
  Transmission Date: 20230113
  Serious: Yes (Hospitalization, Other)
  Sender: FDA-Public Use
  Company Number: US-ORGANON-O2210USA001023

PATIENT
  Sex: Female
  Weight: 132.1 kg

DRUGS (6)
  1. NEXPLANON [Suspect]
     Active Substance: ETONOGESTREL
     Indication: Menstruation irregular
     Dosage: 1 IMPLANT OF 68 MG IN LEFT ARM
     Route: 059
     Dates: start: 20210506
  2. NEXPLANON [Suspect]
     Active Substance: ETONOGESTREL
     Indication: Heavy menstrual bleeding
  3. NEXPLANON [Suspect]
     Active Substance: ETONOGESTREL
     Indication: Contraception
  4. LEVLEN [Suspect]
     Active Substance: ETHINYL ESTRADIOL\LEVONORGESTREL
     Indication: Heavy menstrual bleeding
     Dosage: UNK
     Route: 048
     Dates: start: 202106
  5. WARFARIN [Concomitant]
     Active Substance: WARFARIN
     Indication: Cerebral venous sinus thrombosis
     Dosage: 10 MILLIGRAM, QD
  6. HEPARIN [Concomitant]
     Active Substance: HEPARIN SODIUM
     Dosage: 2300 UNITS/HR

REACTIONS (9)
  - Cerebrovascular accident [Unknown]
  - Seizure [Unknown]
  - Heavy menstrual bleeding [Unknown]
  - Gastrointestinal sounds abnormal [Unknown]
  - Dyschromatopsia [Unknown]
  - Tremor [Unknown]
  - Gait disturbance [Unknown]
  - Product use in unapproved indication [Unknown]
  - Product use issue [Unknown]

NARRATIVE: CASE EVENT DATE: 20210101
